FAERS Safety Report 7659161-3 (Version None)
Quarter: 2011Q3

REPORT INFORMATION
  Report Type: 
  Country: None (occurrence: None)
  Receive Date: 20110805
  Receipt Date: 20110802
  Transmission Date: 20111222
  Serious: Yes (Other)
  Sender: FDA-Public Use
  Company Number: GB-GLAXOSMITHKLINE-B0736739A

PATIENT
  Sex: Female

DRUGS (2)
  1. PAROXETINE HCL [Suspect]
     Indication: ANXIETY
     Dosage: 20MG PER DAY
     Route: 048
  2. AMOXICILLIN [Concomitant]

REACTIONS (4)
  - CIRCULATORY COLLAPSE [None]
  - TREMOR [None]
  - HEADACHE [None]
  - EAR PAIN [None]
